FAERS Safety Report 6134840-8 (Version None)
Quarter: 2009Q1

REPORT INFORMATION
  Report Type: 
  Country: None (occurrence: None)
  Receive Date: 20090327
  Receipt Date: 20090318
  Transmission Date: 20090719
  Serious: Yes (Death)
  Sender: FDA-Public Use
  Company Number: US-JNJFOC-20061103121

PATIENT
  Sex: Female
  Weight: 58.97 kg

DRUGS (4)
  1. ORTHO EVRA [Suspect]
     Indication: MENSTRUATION IRREGULAR
     Route: 062
  2. ORTHO EVRA [Suspect]
     Indication: CONTRACEPTION
     Route: 062
  3. SLIM FAST DIET PILL [Concomitant]
  4. PSEUDOPHED [Concomitant]
     Indication: SINUS CONGESTION

REACTIONS (3)
  - CARDIO-RESPIRATORY ARREST [None]
  - CONVULSION [None]
  - PULMONARY EMBOLISM [None]
